FAERS Safety Report 24523794 (Version 1)
Quarter: 2024Q4

REPORT INFORMATION
  Report Type: Spontaneous
  Country: US (occurrence: US)
  Receive Date: 20241018
  Receipt Date: 20241018
  Transmission Date: 20250115
  Serious: Yes (Other)
  Sender: ELI LILLY AND COMPANY
  Company Number: US-ELI_LILLY_AND_COMPANY-US202410005981

PATIENT
  Age: 81 Year
  Sex: Female

DRUGS (4)
  1. HUMULIN N [Suspect]
     Active Substance: INSULIN HUMAN
     Indication: Type 2 diabetes mellitus
     Dosage: UNK UNK, UNKNOWN
     Route: 065
  2. HUMULIN N [Suspect]
     Active Substance: INSULIN HUMAN
     Indication: Type 2 diabetes mellitus
     Dosage: UNK UNK, UNKNOWN
     Route: 065
  3. HUMULIN N [Suspect]
     Active Substance: INSULIN HUMAN
     Indication: Overweight
     Dosage: UNK UNK, UNKNOWN
     Route: 065
  4. HUMULIN N [Suspect]
     Active Substance: INSULIN HUMAN
     Indication: Overweight
     Dosage: UNK UNK, UNKNOWN
     Route: 065

REACTIONS (7)
  - Fall [Unknown]
  - Fibula fracture [Unknown]
  - Pulmonary mass [Unknown]
  - Balance disorder [Unknown]
  - Arthropathy [Unknown]
  - Cough [Unknown]
  - Eye disorder [Unknown]
